FAERS Safety Report 7568520-9 (Version None)
Quarter: 2011Q2

REPORT INFORMATION
  Report Type: 
  Country: None (occurrence: None)
  Receive Date: 20110617
  Receipt Date: 20110607
  Transmission Date: 20111010
  Serious: Yes (Hospitalization, Other)
  Sender: FDA-Public Use
  Company Number: CL-317-2011

PATIENT
  Age: 67 Year
  Sex: Male

DRUGS (13)
  1. TIOTROPIUM [Concomitant]
  2. DICLOFENAC ESOMEPRAZOLE [Concomitant]
  3. FLUCONAZOLE [Suspect]
     Indication: CANDIDA OSTEOMYELITIS
     Dosage: 400MG OD INTRAVENOUS
     Route: 042
  4. ATROVASTATIN UNK [Suspect]
     Dosage: 80 MG OD ORAL
     Route: 048
  5. ACETAMINOPHEN [Concomitant]
  6. TORSEMIDE [Concomitant]
  7. ALLOPURINOL [Concomitant]
  8. AMIODARONE HCL [Suspect]
     Indication: ATRIAL FIBRILLATION
     Dosage: INTRAVENOUS
     Route: 042
  9. IPRATROPIUM BROMIDE [Concomitant]
  10. DALTEPARIN SODIUM [Concomitant]
  11. TRAMADOL HCL [Concomitant]
  12. KCI TABLETS [Concomitant]
  13. LISINOPRIL AND HYDROCHLOROTHIAZIDE [Concomitant]

REACTIONS (22)
  - CONSTIPATION [None]
  - DISEASE RECURRENCE [None]
  - OSTEOMYELITIS [None]
  - TACHYPNOEA [None]
  - POST PROCEDURAL INFECTION [None]
  - ACUTE PULMONARY OEDEMA [None]
  - BODY TEMPERATURE INCREASED [None]
  - GOUT [None]
  - RHABDOMYOLYSIS [None]
  - HYPERPHOSPHATAEMIA [None]
  - DRUG INTERACTION [None]
  - HYPOCALCAEMIA [None]
  - LARGE INTESTINE PERFORATION [None]
  - ATRIAL FIBRILLATION [None]
  - CANDIDIASIS [None]
  - RENAL FAILURE [None]
  - TACHYCARDIA [None]
  - COMA [None]
  - WHITE BLOOD CELL COUNT INCREASED [None]
  - POST PROCEDURAL COMPLICATION [None]
  - STAPHYLOCOCCUS TEST POSITIVE [None]
  - DELIRIUM [None]
